FAERS Safety Report 7614088 (Version 5)
Quarter: 2013Q1

REPORT INFORMATION
  Report Type: Spontaneous
  Country: GR (occurrence: GR)
  Receive Date: 20101001
  Receipt Date: 20130207
  Transmission Date: 20140127
  Serious: Yes (Disabling, Other)
  Sender: FDA-Public Use
  Company Number: GR-AMGEN-QUU436554

PATIENT
  Age: 67 Year
  Sex: Female
  Weight: 75.6 kg

DRUGS (3)
  1. MIMPARA [Suspect]
     Indication: HYPERPARATHYROIDISM PRIMARY
     Dosage: 30 MG, QD
     Route: 048
     Dates: start: 20100517, end: 20100816
  2. BROMAZEPAM [Concomitant]
  3. T4 [Concomitant]

REACTIONS (3)
  - Alopecia [Recovered/Resolved]
  - Dermatitis [Recovered/Resolved]
  - Chromaturia [Recovered/Resolved]
